FAERS Safety Report 14850221 (Version 1)
Quarter: 2018Q2

REPORT INFORMATION
  Report Type: Spontaneous
  Country: US (occurrence: US)
  Receive Date: 20180505
  Receipt Date: 20180505
  Transmission Date: 20180711
  Serious: Yes (Death, Life-Threatening, Hospitalization, Other)
  Sender: FDA-Public Use
  Company Number: US-ACCORD-066478

PATIENT
  Age: 46 Year
  Sex: Male

DRUGS (6)
  1. MYCOPHENOLATE MOFETIL/MYCOPHENOLATE SODIUM/MYCOPHENOLIC ACID [Suspect]
     Active Substance: MYCOPHENOLIC ACID
     Indication: IMMUNOSUPPRESSANT DRUG THERAPY
  2. ANTITHYMOCYTE IMMUNOGLOBULIN [Concomitant]
     Active Substance: THYMOCYTE IMMUNE GLOBULIN NOS
     Indication: TRANSPLANT REJECTION
     Dosage: 3 DOSES OF THYMOGLOBULIN (2 MG/KG)
  3. TACROLIMUS. [Suspect]
     Active Substance: TACROLIMUS
     Indication: IMMUNOSUPPRESSANT DRUG THERAPY
  4. METHYLPREDNISOLONE. [Concomitant]
     Active Substance: METHYLPREDNISOLONE
     Indication: TRANSPLANT REJECTION
  5. VALGANCICLOVIR/VALGANCICLOVIR HYDROCHLORIDE [Concomitant]
     Indication: ANTIVIRAL PROPHYLAXIS
  6. SULFAMETHOXAZOLE/TRIMETHOPRIM [Concomitant]
     Indication: PNEUMOCYSTIS JIROVECII INFECTION

REACTIONS (14)
  - Treatment noncompliance [None]
  - Lymphadenopathy mediastinal [None]
  - Liver transplant rejection [None]
  - Anaemia [None]
  - Respiratory failure [Fatal]
  - Immunosuppressant drug level increased [None]
  - Lymphadenopathy [None]
  - Haemodialysis [None]
  - Infection in an immunocompromised host [None]
  - Acute kidney injury [None]
  - Pneumonia blastomyces [None]
  - Acute respiratory distress syndrome [Fatal]
  - Blastomycosis [Fatal]
  - Acidosis [None]
